FAERS Safety Report 8538865 (Version 6)
Quarter: 2013Q1

REPORT INFORMATION
  Report Type: Report from Study
  Country: US (occurrence: US)
  Receive Date: 20120501
  Receipt Date: 20130116
  Transmission Date: 20140127
  Serious: Yes (Hospitalization)
  Sender: FDA-Public Use
  Company Number: US-ACTELION-A-US2012-64516

PATIENT
  Age: 67 Year
  Sex: Female

DRUGS (4)
  1. TRACLEER [Suspect]
     Indication: PULMONARY ARTERIAL HYPERTENSION
     Dosage: UNK
     Route: 048
     Dates: start: 201112, end: 20121020
  2. SILDENAFIL [Concomitant]
  3. REMODULIN [Concomitant]
  4. COUMADIN [Concomitant]

REACTIONS (4)
  - Rectal haemorrhage [Unknown]
  - Haemorrhage [Recovered/Resolved]
  - Anaemia [Unknown]
  - Transfusion [Recovered/Resolved]
